FAERS Safety Report 5572927-9 (Version None)
Quarter: 2007Q4

REPORT INFORMATION
  Report Type: 
  Country: None (occurrence: None)
  Receive Date: 20071220
  Receipt Date: 20071220
  Transmission Date: 20080405
  Serious: Yes (Hospitalization)
  Sender: FDA-Public Use
  Company Number: None

PATIENT
  Sex: Male
  Weight: 72.9 kg

DRUGS (3)
  1. FLUOROURACIL [Suspect]
     Dosage: 600MG/M2 IV QD X 5DAY
     Route: 042
     Dates: start: 20071209, end: 20071213
  2. HYDREA [Suspect]
     Dosage: 500MG PO BID
     Route: 048
     Dates: start: 20071209, end: 20071213
  3. CETUXIMAB [Suspect]
     Dosage: 250MG/M2 IV QW
     Route: 042
     Dates: start: 20071210

REACTIONS (2)
  - BLOOD CULTURE POSITIVE [None]
  - STAPHYLOCOCCAL INFECTION [None]
